FAERS Safety Report 14614955 (Version 1)
Quarter: 2018Q1

REPORT INFORMATION
  Report Type: Spontaneous
  Country: GR (occurrence: GR)
  Receive Date: 20180308
  Receipt Date: 20180308
  Transmission Date: 20180509
  Serious: Yes (Other)
  Sender: FDA-Public Use
  Company Number: GR-009507513-1803GRC001454

PATIENT
  Age: 42 Year
  Sex: Female

DRUGS (1)
  1. ORGALUTRAN [Suspect]
     Active Substance: GANIRELIX ACETATE
     Dosage: UNK

REACTIONS (3)
  - Blood luteinising hormone increased [Unknown]
  - Product quality issue [Unknown]
  - Product storage error [Unknown]
